FAERS Safety Report 4826600-2 (Version None)
Quarter: 2005Q4

REPORT INFORMATION
  Report Type: 
  Country: None (occurrence: None)
  Receive Date: 20051014
  Receipt Date: 20050819
  Transmission Date: 20060501
  Serious: No
  Sender: FDA-Public Use
  Company Number: 2005SP002431

PATIENT
  Age: 55 Year
  Sex: Female
  Weight: 75.7507 kg

DRUGS (1)
  1. LUNESTA [Suspect]
     Dosage: 2MG;HS; ORAL
     Route: 048
     Dates: start: 20050801

REACTIONS (4)
  - DYSPHAGIA [None]
  - HEADACHE [None]
  - NAUSEA [None]
  - VOMITING [None]
